FAERS Safety Report 9352914 (Version 1)
Quarter: 2013Q2

REPORT INFORMATION
  Report Type: Spontaneous
  Country: CN (occurrence: CN)
  Receive Date: 20130618
  Receipt Date: 20130618
  Transmission Date: 20140414
  Serious: Yes (Other)
  Sender: FDA-Public Use
  Company Number: CN-JNJFOC-20130602726

PATIENT
  Age: 84 Year
  Sex: Male
  Weight: 62 kg

DRUGS (2)
  1. TYLENOL COLD [Suspect]
     Indication: BRONCHITIS CHRONIC
     Route: 048
     Dates: start: 20120820, end: 20120823
  2. PARACETAMOL/AMINOPHENAZONE/CAFFEINE/CHLORPHENAMINE MALEATE [Suspect]
     Indication: BRONCHITIS CHRONIC
     Route: 048
     Dates: start: 20120820, end: 20120820

REACTIONS (1)
  - Hepatic function abnormal [Recovering/Resolving]
